FAERS Safety Report 7418119-X (Version None)
Quarter: 2011Q2

REPORT INFORMATION
  Report Type: 
  Country: None (occurrence: None)
  Receive Date: 20110412
  Receipt Date: 20110412
  Transmission Date: 20111010
  Serious: No
  Sender: FDA-Public Use
  Company Number: None

PATIENT

DRUGS (1)
  1. ZYCLARA [Suspect]

REACTIONS (10)
  - WOUND SECRETION [None]
  - ULCER [None]
  - SWELLING [None]
  - OEDEMA [None]
  - ERYTHEMA [None]
  - SCAB [None]
  - INFLAMMATION [None]
  - PAIN [None]
  - SKIN EROSION [None]
  - SKIN EXFOLIATION [None]
